FAERS Safety Report 8629752 (Version 2)
Quarter: 2013Q1

REPORT INFORMATION
  Report Type: Report from Study
  Country: CA (occurrence: CA)
  Receive Date: 20120622
  Receipt Date: 20130222
  Transmission Date: 20140127
  Serious: Yes (Other)
  Sender: FDA-Public Use
  Company Number: CA-UCBSA-059764

PATIENT
  Age: 62 Year
  Sex: Male
  Weight: 126 kg

DRUGS (5)
  1. CIMZIA [Suspect]
     Indication: PSORIATIC ARTHROPATHY
     Route: 058
     Dates: start: 20100422
  2. CIMZIA [Suspect]
     Indication: PSORIATIC ARTHROPATHY
     Dosage: WKS 0-2-4
     Route: 058
     Dates: start: 20100226, end: 20100325
  3. ACEBUTOLOL [Concomitant]
  4. CELEBREX [Concomitant]
  5. DIAZIDE [Concomitant]

REACTIONS (2)
  - Diabetes mellitus [Not Recovered/Not Resolved]
  - Folliculitis [Recovered/Resolved]
